FAERS Safety Report 24390040 (Version 1)
Quarter: 2024Q4

REPORT INFORMATION
  Report Type: Report from Study
  Country: ES (occurrence: ES)
  Receive Date: 20241003
  Receipt Date: 20241003
  Transmission Date: 20250114
  Serious: Yes (Other)
  Sender: AUROBINDO
  Company Number: ES-BIAL-BIAL-17150

PATIENT
  Age: 40 Year
  Sex: Female

DRUGS (6)
  1. SIMVASTATIN [Suspect]
     Active Substance: SIMVASTATIN
     Indication: Systemic lupus erythematosus
     Dosage: UNK
     Route: 065
  2. OMEPRAZOLE [Suspect]
     Active Substance: OMEPRAZOLE
     Indication: Systemic lupus erythematosus
     Dosage: UNK
     Route: 065
  3. IBUPROFEN [Suspect]
     Active Substance: IBUPROFEN
     Indication: Systemic lupus erythematosus
     Dosage: UNK
     Route: 065
  4. ASPIRIN [Suspect]
     Active Substance: ASPIRIN
     Indication: Systemic lupus erythematosus
     Dosage: UNK
     Route: 065
  5. HYDROXYCHLOROQUINE [Suspect]
     Active Substance: HYDROXYCHLOROQUINE
     Indication: Systemic lupus erythematosus
     Dosage: UNK
     Route: 065
  6. BETAHISTINE HYDROCHLORIDE [Suspect]
     Active Substance: BETAHISTINE HYDROCHLORIDE
     Indication: Systemic lupus erythematosus
     Dosage: UNK
     Route: 065

REACTIONS (2)
  - Abortion spontaneous [Unknown]
  - Exposure during pregnancy [Unknown]
